FAERS Safety Report 15980275 (Version 1)
Quarter: 2019Q1

REPORT INFORMATION
  Report Type: Spontaneous
  Country: BR (occurrence: BR)
  Receive Date: 20190219
  Receipt Date: 20190219
  Transmission Date: 20190418
  Serious: Yes (Hospitalization)
  Sender: FDA-Public Use
  Company Number: PHHY2019BR036440

PATIENT
  Sex: Male
  Weight: 71.4 kg

DRUGS (1)
  1. GILENYA [Suspect]
     Active Substance: FINGOLIMOD HYDROCHLORIDE
     Indication: MULTIPLE SCLEROSIS
     Dosage: 1 DF, QD
     Route: 048
     Dates: start: 2012, end: 201812

REACTIONS (8)
  - Headache [Recovered/Resolved]
  - Eye disorder [Recovered/Resolved]
  - Feeling abnormal [Recovered/Resolved]
  - Dysentery [Recovered/Resolved]
  - Hypersensitivity [Recovered/Resolved]
  - Lactose intolerance [Recovered/Resolved]
  - Pruritus [Recovered/Resolved]
  - Prescribed underdose [Recovered/Resolved]
